FAERS Safety Report 4478422-2 (Version None)
Quarter: 2004Q4

REPORT INFORMATION
  Report Type: 
  Country: None (occurrence: None)
  Receive Date: 20041018
  Receipt Date: 20041018
  Transmission Date: 20050328
  Serious: Yes (Life-Threatening, Disabling, Congenital Anomaly, Other)
  Sender: FDA-Public Use
  Company Number: None

PATIENT
  Sex: Female
  Weight: 1.3608 kg

DRUGS (2)
  1. ISONIAZID [Suspect]
     Dosage: 300 MG DAILY ORAL
     Route: 048
     Dates: start: 20010215, end: 20011230
  2. DIFLUCAN [Suspect]

REACTIONS (9)
  - BLINDNESS CONGENITAL [None]
  - CATARACT CONGENITAL [None]
  - CONGENITAL NEUROLOGICAL DISORDER [None]
  - DEVELOPMENTAL DELAY [None]
  - GROWTH RETARDATION [None]
  - MATERNAL DRUGS AFFECTING FOETUS [None]
  - MICROCEPHALY [None]
  - RADIATION EXPOSURE IN UTERO [None]
  - SMALL FOR DATES BABY [None]
